FAERS Safety Report 8590570 (Version 4)
Quarter: 2013Q4

REPORT INFORMATION
  Report Type: Report from Study
  Country: JP (occurrence: JP)
  Receive Date: 20120522
  Receipt Date: 20131011
  Transmission Date: 20140711
  Serious: Yes (Hospitalization, Other)
  Sender: FDA-Public Use
  Company Number: JP-009507513-2012SP025340

PATIENT
  Age: 71 Year
  Sex: Male
  Weight: 47 kg

DRUGS (9)
  1. PEGINTRON [Suspect]
     Indication: CHRONIC HEPATITIS C
     Dosage: 1.5MCG/KG/WEEK
     Route: 058
     Dates: start: 20120117, end: 20120327
  2. REBETOL [Suspect]
     Indication: CHRONIC HEPATITIS C
     Dosage: 600 MG, ONCE
     Route: 048
     Dates: start: 20120117, end: 20120130
  3. REBETOL [Suspect]
     Dosage: 200 MG, QD
     Route: 048
     Dates: start: 20120131, end: 20120320
  4. TELAVIC [Suspect]
     Indication: CHRONIC HEPATITIS C
     Dosage: 2250 MG, ONCE
     Route: 048
     Dates: start: 20120117, end: 20120229
  5. TELAVIC [Suspect]
     Dosage: 1500 MG, ONCE
     Route: 048
     Dates: start: 20120301, end: 20120320
  6. TELAVIC [Suspect]
     Dosage: UNK
  7. ZANTAC [Concomitant]
     Indication: GASTRITIS
     Dosage: 300 MG, ONCE
     Route: 048
  8. GLUFAST [Concomitant]
     Indication: DIABETES MELLITUS
     Dosage: 30 MG, ONCE
     Route: 048
  9. TAMIFLU [Concomitant]
     Indication: PROPHYLAXIS
     Dosage: FORMULATION: POR
     Route: 048
     Dates: start: 20120204, end: 20120209

REACTIONS (2)
  - Anaemia [Recovering/Resolving]
  - Pancreatitis acute [Recovered/Resolved]
